FAERS Safety Report 25824980 (Version 1)
Quarter: 2025Q3

REPORT INFORMATION
  Report Type: Spontaneous
  Country: EU (occurrence: EU)
  Receive Date: 20250919
  Receipt Date: 20250919
  Transmission Date: 20251020
  Serious: Yes (Hospitalization)
  Sender: AUROBINDO
  Company Number: EU-AEMPS-1749893

PATIENT
  Age: 71 Year
  Sex: Female

DRUGS (4)
  1. QUETIAPINE [Interacting]
     Active Substance: QUETIAPINE
     Indication: Insomnia
     Dosage: 25 MILLIGRAM, ONCE A DAY
     Route: 048
     Dates: start: 20250805, end: 20250823
  2. RISPERIDONE [Interacting]
     Active Substance: RISPERIDONE
     Indication: Agitation
     Dosage: 0.5 MILLIGRAM, ONCE A DAY
     Route: 048
     Dates: start: 20250808, end: 20250820
  3. MIRTAZAPINE [Interacting]
     Active Substance: MIRTAZAPINE
     Indication: Insomnia
     Dosage: 15 MILLIGRAM, ONCE A DAY
     Route: 048
     Dates: start: 20250806, end: 20250820
  4. FUROSEMIDE [Interacting]
     Active Substance: FUROSEMIDE
     Indication: Oliguria
     Route: 042
     Dates: start: 20250727, end: 20250826

REACTIONS (1)
  - Hyponatraemia [Recovered/Resolved]

NARRATIVE: CASE EVENT DATE: 20250812
